FAERS Safety Report 24930299 (Version 3)
Quarter: 2025Q1

REPORT INFORMATION
  Report Type: Spontaneous
  Country: US (occurrence: US)
  Receive Date: 20250205
  Receipt Date: 20250207
  Transmission Date: 20250409
  Serious: Yes (Other)
  Sender: PFIZER
  Company Number: US-PFIZER INC-PV202500013835

PATIENT
  Age: 78 Year
  Sex: Female

DRUGS (14)
  1. FELDENE [Suspect]
     Active Substance: PIROXICAM
  2. DEMEROL [Suspect]
     Active Substance: MEPERIDINE HYDROCHLORIDE
  3. ALBUTEROL SULFATE [Concomitant]
     Active Substance: ALBUTEROL SULFATE
  4. CARBOXYMETHYLCELLULOSE [Concomitant]
     Active Substance: CARBOXYMETHYLCELLULOSE
  5. FAMOTIDINE [Concomitant]
     Active Substance: FAMOTIDINE
  6. LORATADINE [Concomitant]
     Active Substance: LORATADINE
  7. LUTEIN [Concomitant]
     Active Substance: LUTEIN
  8. PREDNISONE [Concomitant]
     Active Substance: PREDNISONE
  9. METHIMAZOLE [Concomitant]
     Active Substance: METHIMAZOLE
  10. OMEPRAZOLE [Concomitant]
     Active Substance: OMEPRAZOLE
  11. ACTEMRA [Concomitant]
     Active Substance: TOCILIZUMAB
  12. DHA/EPA [Concomitant]
  13. VITAMIN E [Concomitant]
     Active Substance: .ALPHA.-TOCOPHEROL
  14. VITAMINS [Concomitant]
     Active Substance: VITAMINS

REACTIONS (2)
  - Angioedema [Unknown]
  - Swelling [Unknown]
